FAERS Safety Report 9188136 (Version 1)
Quarter: 2013Q1

REPORT INFORMATION
  Report Type: Spontaneous
  Country: VE (occurrence: VE)
  Receive Date: 20130325
  Receipt Date: 20130325
  Transmission Date: 20140127
  Serious: Yes (Death)
  Sender: FDA-Public Use
  Company Number: VE-PFIZER INC-2013095906

PATIENT
  Sex: Female

DRUGS (1)
  1. CADUET [Suspect]
     Dosage: [AMLODIPINE BESILATE 5 MG]/ [ATORVASTATIN CALCIUM 20 MG] (1 DF), UNK

REACTIONS (1)
  - Death [Fatal]
